FAERS Safety Report 5824254-X (Version None)
Quarter: 2008Q3

REPORT INFORMATION
  Report Type: 
  Country: None (occurrence: None)
  Receive Date: 20080718
  Receipt Date: 20080225
  Transmission Date: 20090109
  Serious: Yes (Other)
  Sender: FDA-Public Use
  Company Number: A-US2008-19636

PATIENT
  Age: 53 Year
  Sex: Female
  Weight: 98.9 kg

DRUGS (2)
  1. TRACLEER [Suspect]
     Indication: PULMONARY ARTERIAL HYPERTENSION
     Dosage: ORAL
     Route: 048
     Dates: end: 20080220
  2. PROCARDIA [Concomitant]

REACTIONS (9)
  - CHEST DISCOMFORT [None]
  - DYSPNOEA [None]
  - EYELID OEDEMA [None]
  - OEDEMA [None]
  - OEDEMA PERIPHERAL [None]
  - RAYNAUD'S PHENOMENON [None]
  - SECRETION DISCHARGE [None]
  - SWELLING [None]
  - SWELLING FACE [None]
